FAERS Safety Report 7948867-4 (Version None)
Quarter: 2011Q4

REPORT INFORMATION
  Report Type: 
  Country: None (occurrence: None)
  Receive Date: 20111130
  Receipt Date: 20111121
  Transmission Date: 20120403
  Serious: Yes (Death)
  Sender: FDA-Public Use
  Company Number: US-JNJFOC-20111111504

PATIENT
  Age: 21 Year
  Sex: Male

DRUGS (4)
  1. TYPHOID VACCINE [Interacting]
     Indication: IMMUNISATION
     Route: 058
  2. PSEUDOEPHEDRINE HCL [Suspect]
     Route: 065
  3. JAPANESE ENCEPHALITIS VACCINE [Interacting]
     Indication: IMMUNISATION
     Route: 058
  4. PSEUDOEPHEDRINE HCL [Suspect]
     Indication: WEIGHT LOSS DIET
     Route: 065

REACTIONS (5)
  - CARDIAC ARREST [None]
  - HYPERTHERMIA [None]
  - SUDDEN DEATH [None]
  - OFF LABEL USE [None]
  - DRUG INTERACTION [None]
